FAERS Safety Report 9814759 (Version 1)
Quarter: 2014Q1

REPORT INFORMATION
  Report Type: Spontaneous
  Country: US (occurrence: US)
  Receive Date: 20140113
  Receipt Date: 20140113
  Transmission Date: 20141002
  Serious: Yes (Death, Hospitalization, Other)
  Sender: FDA-Public Use
  Company Number: US-PFIZER INC-2014006364

PATIENT
  Age: 53 Year
  Sex: Male

DRUGS (2)
  1. VENLAFAXINE HCL [Suspect]
     Dosage: UNK
     Route: 048
  2. BUPROPION [Suspect]
     Dosage: 300 MG, INGESTED 20-30 TABS.
     Route: 048

REACTIONS (9)
  - Completed suicide [Fatal]
  - Toxicity to various agents [Fatal]
  - Alcohol poisoning [Fatal]
  - Nausea [Unknown]
  - Status epilepticus [Recovered/Resolved]
  - Unresponsive to stimuli [Not Recovered/Not Resolved]
  - Hypotension [Not Recovered/Not Resolved]
  - Hypoxic-ischaemic encephalopathy [Not Recovered/Not Resolved]
  - Fluid overload [Not Recovered/Not Resolved]
